FAERS Safety Report 7478667-3 (Version None)
Quarter: 2011Q2

REPORT INFORMATION
  Report Type: 
  Country: None (occurrence: None)
  Receive Date: 20110511
  Receipt Date: 20110511
  Transmission Date: 20111010
  Serious: No
  Sender: FDA-Public Use
  Company Number: None

PATIENT
  Sex: Female
  Weight: 51.5 kg

DRUGS (1)
  1. PACLITAXEL [Suspect]
     Indication: OVARIAN CANCER
     Dosage: 192MG EVERY 3 WEEKS INTRAVENOUS 041
     Route: 042
     Dates: start: 20100923, end: 20101124

REACTIONS (4)
  - CHEST DISCOMFORT [None]
  - FLUSHING [None]
  - APHASIA [None]
  - FEELING ABNORMAL [None]
